FAERS Safety Report 7603853-9 (Version None)
Quarter: 2011Q3

REPORT INFORMATION
  Report Type: 
  Country: None (occurrence: None)
  Receive Date: 20110712
  Receipt Date: 20110710
  Transmission Date: 20111222
  Serious: No
  Sender: FDA-Public Use
  Company Number: US-PFIZER INC-2011154838

PATIENT
  Sex: Male

DRUGS (4)
  1. CARVEDILOL [Concomitant]
     Indication: CARDIOVASCULAR EVENT PROPHYLAXIS
     Dosage: 3 MG, 2X/DAY
  2. CHANTIX [Suspect]
     Indication: SMOKING CESSATION THERAPY
     Dosage: 1 MG DAILY
     Route: 048
     Dates: start: 20110705, end: 20110710
  3. SEROQUEL [Concomitant]
     Indication: AFFECTIVE DISORDER
     Dosage: 600 MG,DAILY AT NIGHT
  4. LIPITOR [Concomitant]
     Indication: BLOOD CHOLESTEROL ABNORMAL
     Dosage: UNK,DAILY

REACTIONS (7)
  - IRRITABILITY [None]
  - TOBACCO USER [None]
  - ANXIETY [None]
  - NERVOUSNESS [None]
  - AGITATION [None]
  - POOR QUALITY SLEEP [None]
  - SOMNOLENCE [None]
